FAERS Safety Report 9142344 (Version 2)
Quarter: 2013Q1

REPORT INFORMATION
  Report Type: Spontaneous
  Country: US (occurrence: US)
  Receive Date: 20130306
  Receipt Date: 20130311
  Transmission Date: 20140127
  Serious: No
  Sender: FDA-Public Use
  Company Number: US-009507513-1303USA000716

PATIENT
  Age: 61 Year
  Sex: Male

DRUGS (1)
  1. NASONEX [Suspect]
     Dosage: 1 UNK, UNK
     Dates: start: 20130224

REACTIONS (2)
  - Drug dose omission [Unknown]
  - Product quality issue [Unknown]
